FAERS Safety Report 8877153 (Version 2)
Quarter: 2012Q4

REPORT INFORMATION
  Report Type: Spontaneous
  Country: DE (occurrence: None)
  Receive Date: 20121024
  Receipt Date: 20121130
  Transmission Date: 20130627
  Serious: No
  Sender: FDA-Public Use
  Company Number: ACO_32638_2012

PATIENT
  Age: 46 Year
  Sex: Male

DRUGS (6)
  1. FAMPYRA [Suspect]
     Indication: GAIT DISTURBANCE
     Route: 048
     Dates: start: 20120402
  2. FAMPYRA [Suspect]
     Route: 048
     Dates: start: 20120402
  3. AMITRIPTYLINE (AMITRIPTYLINE HYDROCHLORIDE) [Concomitant]
  4. FENTANYL (FENTANYL CITRATE) INJECTION [Concomitant]
  5. PREGABALIN (PREGABALIN) [Concomitant]
  6. FOSAMAX (ALENDRONATE SODIUM) [Concomitant]

REACTIONS (2)
  - Epilepsy [None]
  - Disorientation [None]
